FAERS Safety Report 24042757 (Version 1)
Quarter: 2024Q3

REPORT INFORMATION
  Report Type: Spontaneous
  Country: CN (occurrence: CN)
  Receive Date: 20240702
  Receipt Date: 20240702
  Transmission Date: 20241016
  Serious: Yes (Death)
  Sender: EAGLE
  Company Number: PA2024CN000069

PATIENT
  Age: 52 Year
  Sex: Male

DRUGS (4)
  1. REMIMAZOLAM [Suspect]
     Active Substance: REMIMAZOLAM
     Indication: Induction of anaesthesia
     Dosage: 5 MILLIGRAM
     Route: 042
     Dates: start: 20240509
  2. CIPEPOFOL [Suspect]
     Active Substance: CIPEPOFOL
     Indication: Induction of anaesthesia
     Dosage: 20 MILLIGRAM
     Route: 042
     Dates: start: 20240509
  3. REMIFENTANIL HYDROCHLORIDE [Suspect]
     Active Substance: REMIFENTANIL HYDROCHLORIDE
     Indication: Induction of anaesthesia
     Dosage: 80 MICROGRAM
     Route: 042
     Dates: start: 20240509
  4. ROCURONIUM BROMIDE [Suspect]
     Active Substance: ROCURONIUM BROMIDE
     Indication: Induction of anaesthesia
     Dosage: 30 MILLIGRAM
     Route: 042
     Dates: start: 20240509

REACTIONS (1)
  - Cardiogenic shock [Fatal]

NARRATIVE: CASE EVENT DATE: 20240509
